FAERS Safety Report 12923620 (Version 4)
Quarter: 2017Q1

REPORT INFORMATION
  Report Type: Spontaneous
  Country: US (occurrence: US)
  Receive Date: 20161109
  Receipt Date: 20170206
  Transmission Date: 20170428
  Serious: Yes (Hospitalization)
  Sender: FDA-Public Use
  Company Number: US-PFIZER INC-2016513154

PATIENT
  Age: 66 Year
  Sex: Female
  Weight: 99 kg

DRUGS (2)
  1. IBRANCE [Suspect]
     Active Substance: PALBOCICLIB
     Indication: BREAST CANCER METASTATIC
     Dosage: 125 MG, CYCLIC (DAY1-21, EVERY 28 DAYS)
     Route: 048
     Dates: start: 20161018
  2. IBRANCE [Suspect]
     Active Substance: PALBOCICLIB
     Dosage: 125 MG, CYCLIC (DAYS 1-21 Q 28 DAYS)
     Route: 048
     Dates: start: 20161018

REACTIONS (9)
  - Pain in extremity [Unknown]
  - Nausea [Recovering/Resolving]
  - Depression [Unknown]
  - Pain [Unknown]
  - Cardiac failure congestive [Unknown]
  - Neoplasm progression [Unknown]
  - Constipation [Unknown]
  - White blood cell count decreased [Unknown]
  - Spinal pain [Unknown]

NARRATIVE: CASE EVENT DATE: 201610
